FAERS Safety Report 9342580 (Version 3)
Quarter: 2013Q3

REPORT INFORMATION
  Report Type: Spontaneous
  Country: PT (occurrence: PT)
  Receive Date: 20130611
  Receipt Date: 20130812
  Transmission Date: 20140515
  Serious: Yes (Hospitalization)
  Sender: FDA-Public Use
  Company Number: PHHY2013PT056487

PATIENT
  Age: 39 Year
  Sex: Male

DRUGS (9)
  1. LEPONEX [Suspect]
     Indication: SCHIZOPHRENIA
     Dosage: 75 MG/DAY
     Route: 048
     Dates: start: 20130418, end: 20130509
  2. LEPONEX [Suspect]
     Dosage: 100 MG/DAY
     Route: 048
     Dates: start: 20130509, end: 20130510
  3. DEPAKINE CHRONO [Concomitant]
     Indication: SCHIZOPHRENIA
     Dosage: 500 MG, BID (2X/DAY)
     Route: 048
     Dates: start: 20130417, end: 20130517
  4. DIAZEPAM ^RATIOPHARM^ [Concomitant]
     Indication: ANXIETY
     Dosage: 10 MG, (10 MG 3X/DAY)
     Route: 048
     Dates: start: 20130417, end: 20130430
  5. DIAZEPAM ^RATIOPHARM^ [Concomitant]
     Dosage: 5 MG, PER DAY
     Route: 048
     Dates: start: 20130430, end: 20130510
  6. ZYPREXA [Concomitant]
     Indication: SCHIZOPHRENIA, PARANOID TYPE
     Dosage: 15 MG, QD
     Route: 048
  7. ZYPREXA [Concomitant]
     Indication: SCHIZOPHRENIA
     Dosage: 30 MG, QD
     Route: 048
     Dates: end: 20130417
  8. CISORDINOL DEPOT [Concomitant]
     Indication: SCHIZOPHRENIA, PARANOID TYPE
     Dosage: 400 MG, EVERY 4 WEEKS
     Route: 030
  9. CISORDINOL DEPOT [Concomitant]
     Indication: SCHIZOPHRENIA, PARANOID TYPE

REACTIONS (6)
  - Colitis [Recovered/Resolved]
  - Diarrhoea [Recovered/Resolved]
  - Lymphopenia [Recovered/Resolved]
  - Leukopenia [Recovered/Resolved]
  - Neutropenia [Recovered/Resolved]
  - Eosinophilia [Recovered/Resolved]
